FAERS Safety Report 24951503 (Version 1)
Quarter: 2025Q1

REPORT INFORMATION
  Report Type: Spontaneous
  Country: US (occurrence: US)
  Receive Date: 20250210
  Receipt Date: 20250210
  Transmission Date: 20250409
  Serious: Yes (Other)
  Sender: INTRA-CELLULAR THERAPIES
  Company Number: US-INTRA-CELLULAR THERAPIES, INC.-2024ICT02036

PATIENT
  Sex: Female
  Weight: 53.524 kg

DRUGS (5)
  1. CAPLYTA [Suspect]
     Active Substance: LUMATEPERONE
     Indication: Depression
     Dosage: 21 MG, 1X/DAY
     Route: 048
     Dates: start: 2023, end: 202411
  2. CAPLYTA [Suspect]
     Active Substance: LUMATEPERONE
     Dosage: 31.5 MG, 1X/DAY
     Route: 048
     Dates: start: 202411, end: 2024
  3. CAPLYTA [Suspect]
     Active Substance: LUMATEPERONE
     Dosage: 21 MG, 1X/DAY
     Route: 048
     Dates: start: 2024
  4. DIAZEPAM [Suspect]
     Active Substance: DIAZEPAM
     Dates: end: 202411
  5. BELSOMRA [Concomitant]
     Active Substance: SUVOREXANT

REACTIONS (7)
  - Seizure [Recovered/Resolved]
  - Diplopia [Recovering/Resolving]
  - Visual impairment [Recovering/Resolving]
  - Cognitive disorder [Recovering/Resolving]
  - Headache [Not Recovered/Not Resolved]
  - Gait disturbance [Recovering/Resolving]
  - Drug ineffective for unapproved indication [Recovering/Resolving]

NARRATIVE: CASE EVENT DATE: 20230101
